FAERS Safety Report 12189593 (Version 1)
Quarter: 2016Q1

REPORT INFORMATION
  Report Type: Spontaneous
  Country: US (occurrence: US)
  Receive Date: 20160318
  Receipt Date: 20160318
  Transmission Date: 20160526
  Serious: Yes (Other)
  Sender: FDA-Public Use
  Company Number: US-PAR PHARMACEUTICAL COMPANIES-2016SCPR015260

PATIENT

DRUGS (3)
  1. KETALAR [Suspect]
     Active Substance: KETAMINE HYDROCHLORIDE
     Indication: SEDATIVE THERAPY
     Dosage: 0.5 MG/KG/HOUR, UNKNOWN
     Route: 042
  2. VASOPRESSOR [Concomitant]
     Active Substance: UNSPECIFIED INGREDIENT
     Indication: PRODUCT USED FOR UNKNOWN INDICATION
     Dosage: UNK, UNKNOWN
     Route: 065
  3. KETALAR [Suspect]
     Active Substance: KETAMINE HYDROCHLORIDE
     Dosage: UNK UNK, UNKNOWN
     Route: 042

REACTIONS (1)
  - Atrial fibrillation [Unknown]
